FAERS Safety Report 6850807-6 (Version None)
Quarter: 2010Q3

REPORT INFORMATION
  Report Type: 
  Country: None (occurrence: None)
  Receive Date: 20100716
  Receipt Date: 20071022
  Transmission Date: 20110219
  Serious: No
  Sender: FDA-Public Use
  Company Number: US-PFIZER INC-2007089817

PATIENT
  Sex: Male
  Weight: 106.81 kg

DRUGS (7)
  1. CHANTIX [Suspect]
     Indication: SMOKING CESSATION THERAPY
     Dates: start: 20070906
  2. DEPAKOTE [Concomitant]
  3. ZYPREXA [Concomitant]
  4. KLONOPIN [Concomitant]
  5. CLONAZEPAM [Concomitant]
  6. METFORMIN HCL [Concomitant]
  7. LIPITOR [Concomitant]

REACTIONS (6)
  - APATHY [None]
  - DEPRESSION [None]
  - HYPERPHAGIA [None]
  - LAZINESS [None]
  - TERMINAL INSOMNIA [None]
  - WEIGHT INCREASED [None]
